FAERS Safety Report 15058154 (Version 1)
Quarter: 2018Q3

REPORT INFORMATION
  Report Type: Spontaneous
  Country: IT (occurrence: IT)
  Receive Date: 20180625
  Receipt Date: 20180625
  Transmission Date: 20181010
  Serious: Yes (Other)
  Sender: FDA-Public Use
  Company Number: IT-AUROBINDO-AUR-APL-2018-032301

PATIENT
  Age: 44 Year
  Sex: Female

DRUGS (4)
  1. THIAMPHENICOL GLYCINATE ACETYLCYSTEINE [Suspect]
     Active Substance: THIAMPHENICOL GLYCINATE ACETYLCYSTEINE
     Indication: BACTERIAL INFECTION
     Dosage: UNK
     Route: 055
     Dates: start: 20180427, end: 20180427
  2. LEVOFLOXACIN. [Suspect]
     Active Substance: LEVOFLOXACIN
     Indication: BACTERIAL INFECTION
     Dosage: UNK
     Route: 048
     Dates: start: 20180427, end: 20180427
  3. AMOXICILLIN. [Suspect]
     Active Substance: AMOXICILLIN
     Indication: BACTERIAL INFECTION
     Dosage: UNK
     Route: 048
  4. BREVA [Suspect]
     Active Substance: ALBUTEROL\IPRATROPIUM
     Indication: BACTERIAL INFECTION
     Dosage: UNK
     Route: 055
     Dates: start: 20180427, end: 20180427

REACTIONS (2)
  - Pruritus [Not Recovered/Not Resolved]
  - Urticaria [Not Recovered/Not Resolved]

NARRATIVE: CASE EVENT DATE: 20180427
